FAERS Safety Report 7916786-5 (Version None)
Quarter: 2011Q4

REPORT INFORMATION
  Report Type: 
  Country: None (occurrence: None)
  Receive Date: 20111116
  Receipt Date: 20111105
  Transmission Date: 20120403
  Serious: Yes (Hospitalization, Other)
  Sender: FDA-Public Use
  Company Number: ZA-ELI_LILLY_AND_COMPANY-ZA201111003189

PATIENT
  Sex: Female

DRUGS (7)
  1. ZOLPIDEM TARTRATE [Concomitant]
     Dosage: UNK
  2. ENOXAPARIN SODIUM [Concomitant]
     Dosage: 40 MG, UNK
  3. HUMALOG [Suspect]
     Dosage: 14 U, EACH EVENING
     Dates: end: 20111105
  4. HUMALOG MIX 75/25 [Suspect]
     Dosage: 14 U, EACH EVENING
  5. PROGESTERONE [Concomitant]
     Dosage: UNK
  6. HUMALOG [Suspect]
     Indication: HYPERGLYCAEMIA
     Dosage: 28 U, EACH MORNING
     Dates: end: 20111105
  7. HUMALOG MIX 75/25 [Suspect]
     Indication: HYPERGLYCAEMIA
     Dosage: 28 U, EACH MORNING

REACTIONS (3)
  - WRONG DRUG ADMINISTERED [None]
  - ABORTION THREATENED [None]
  - MATERNAL EXPOSURE DURING PREGNANCY [None]
